FAERS Safety Report 11649497 (Version 2)
Quarter: 2015Q4

REPORT INFORMATION
  Report Type: Spontaneous
  Country: US (occurrence: US)
  Receive Date: 20151021
  Receipt Date: 20151211
  Transmission Date: 20160304
  Serious: No
  Sender: FDA-Public Use
  Company Number: ALCN2015US006503

PATIENT
  Age: 62 Year
  Sex: Female

DRUGS (1)
  1. PATANOL [Suspect]
     Active Substance: OLOPATADINE HYDROCHLORIDE
     Indication: EYE ALLERGY
     Dosage: 1 GTT, PRN
     Route: 047
     Dates: start: 20150318, end: 20151013

REACTIONS (2)
  - Incorrect dose administered [Not Recovered/Not Resolved]
  - Eye irritation [Not Recovered/Not Resolved]

NARRATIVE: CASE EVENT DATE: 20151012
